FAERS Safety Report 13856566 (Version 1)
Quarter: 2017Q3

REPORT INFORMATION
  Report Type: Spontaneous
  Country: US (occurrence: US)
  Receive Date: 20170810
  Receipt Date: 20170810
  Transmission Date: 20171127
  Serious: No
  Sender: FDA-Public Use
  Company Number: US-ROCHE-1330367

PATIENT
  Age: 57 Year
  Sex: Female

DRUGS (2)
  1. SYNTHROID [Concomitant]
     Active Substance: LEVOTHYROXINE SODIUM
     Dosage: REGARDING DOSE: ^IT^S NOT MUCH, I DON^T KNOW^
     Route: 065
  2. TAMIFLU [Suspect]
     Active Substance: OSELTAMIVIR PHOSPHATE
     Indication: PRODUCT USED FOR UNKNOWN INDICATION
     Dosage: MOST RECENT DOSE OF OSELTAMIVIR PHOSPHATE: 07/JAN/2014
     Route: 065
     Dates: start: 20140106

REACTIONS (3)
  - Pyrexia [Unknown]
  - Chills [Unknown]
  - Pain [Unknown]
